FAERS Safety Report 6920151-7 (Version None)
Quarter: 2010Q3

REPORT INFORMATION
  Report Type: 
  Country: None (occurrence: None)
  Receive Date: 20100809
  Receipt Date: 20100728
  Transmission Date: 20110219
  Serious: Yes (Hospitalization)
  Sender: FDA-Public Use
  Company Number: FR-SOLVAY-00310004807

PATIENT
  Sex: Female

DRUGS (13)
  1. FLUVOXAMINE MALEATE [Suspect]
     Indication: DEPRESSION
     Dosage: 100 MILLIGRAM(S) ORAL
     Route: 048
     Dates: start: 20100615
  2. LAMICTAL [Suspect]
     Indication: PRODUCT USED FOR UNKNOWN INDICATION
     Dates: start: 20100615, end: 20100701
  3. TRIMEBUTINE (TRIMEBUTINE) [Suspect]
     Indication: PRODUCT USED FOR UNKNOWN INDICATION
     Dates: start: 20100615, end: 20100701
  4. DOMPERIDONE (DOMPERIDONE) [Suspect]
     Indication: PRODUCT USED FOR UNKNOWN INDICATION
     Dates: start: 20100615, end: 20100701
  5. CLOMIPRAMINE HCL [Concomitant]
  6. ZYPREXA [Concomitant]
  7. ZOLPIDEM TARTRATE [Concomitant]
  8. ATARAX (HYDOXYZINE HYDROCHLORIDE) [Concomitant]
  9. POLYETHYLENE GLYCOL [Concomitant]
  10. PAROXETINE HCL [Concomitant]
  11. VITAMINE B1, B6(VITAMINE B1, B6) [Concomitant]
  12. DESLORATADINE [Concomitant]
  13. PRIMPERAN TAB [Concomitant]

REACTIONS (3)
  - ACUTE GENERALISED EXANTHEMATOUS PUSTULOSIS [None]
  - ANGIOEDEMA [None]
  - URTICARIA [None]
